FAERS Safety Report 16059047 (Version 1)
Quarter: 2019Q1

REPORT INFORMATION
  Report Type: Spontaneous
  Country: DE (occurrence: DE)
  Receive Date: 20190311
  Receipt Date: 20190311
  Transmission Date: 20190418
  Serious: Yes (Other)
  Sender: FDA-Public Use
  Company Number: PHHY2019DE052874

PATIENT
  Sex: Female

DRUGS (1)
  1. SIGNIFOR [Suspect]
     Active Substance: PASIREOTIDE
     Indication: PITUITARY-DEPENDENT CUSHING^S SYNDROME
     Dosage: UNK UNK, BID
     Route: 058

REACTIONS (4)
  - Liver injury [Unknown]
  - Drug intolerance [Unknown]
  - Nelson^s syndrome [Unknown]
  - Addison^s disease [Unknown]
